FAERS Safety Report 17326222 (Version 4)
Quarter: 2020Q1

REPORT INFORMATION
  Report Type: Spontaneous
  Country: US (occurrence: US)
  Receive Date: 20200127
  Receipt Date: 20200213
  Transmission Date: 20200409
  Serious: No
  Sender: FDA-Public Use
  Company Number: US-PFIZER INC-2020034943

PATIENT
  Age: 83 Year
  Sex: Female
  Weight: 91 kg

DRUGS (2)
  1. ESTRING [Suspect]
     Active Substance: ESTRADIOL
     Indication: VAGINAL INFECTION
  2. ESTRING [Suspect]
     Active Substance: ESTRADIOL
     Indication: URINARY INCONTINENCE
     Dosage: UNK
     Route: 067
     Dates: start: 20200120

REACTIONS (4)
  - Cystitis [Unknown]
  - Overweight [Unknown]
  - Body height decreased [Unknown]
  - Drug ineffective [Unknown]
